FAERS Safety Report 11964489 (Version 1)
Quarter: 2016Q1

REPORT INFORMATION
  Report Type: Spontaneous
  Country: US (occurrence: None)
  Receive Date: 20160122
  Receipt Date: 20160122
  Transmission Date: 20160526
  Serious: Yes (Other)
  Sender: FDA-Public Use
  Company Number: None

PATIENT
  Age: 68 Year
  Sex: Female
  Weight: 77.11 kg

DRUGS (23)
  1. TECFIDERA [Suspect]
     Active Substance: DIMETHYL FUMARATE
     Indication: MULTIPLE SCLEROSIS
     Dosage: 2 PILLS TWICE DAILY TAKEN BY MOUTH
     Dates: start: 20131001, end: 20151101
  2. OMEPRAZOLE. [Concomitant]
     Active Substance: OMEPRAZOLE
  3. GINGKO BILOBA [Concomitant]
  4. OMEGA 3 [Concomitant]
     Active Substance: OMEGA-3 FATTY ACIDS
  5. ZYRTEC [Concomitant]
     Active Substance: CETIRIZINE HYDROCHLORIDE
  6. METHENAM [Concomitant]
  7. LUTEIN [Concomitant]
     Active Substance: LUTEIN
  8. SUCRALFATE. [Concomitant]
     Active Substance: SUCRALFATE
  9. LISINOPRIL. [Concomitant]
     Active Substance: LISINOPRIL
  10. GABAPENTIN. [Concomitant]
     Active Substance: GABAPENTIN
  11. MECLIZINE [Concomitant]
     Active Substance: MECLIZINE HYDROCHLORIDE
  12. VITAMIN E [Concomitant]
     Active Substance: .ALPHA.-TOCOPHEROL
  13. CRANBERRY SUPPLEMENT [Concomitant]
  14. ATENOLOL. [Concomitant]
     Active Substance: ATENOLOL
  15. POTASSIUM IODIDE [Concomitant]
     Active Substance: POTASSIUM IODIDE
  16. LECITHIN [Concomitant]
     Active Substance: LECITHIN
  17. VITAMIN D [Concomitant]
     Active Substance: CHOLECALCIFEROL
  18. NORVASC [Concomitant]
     Active Substance: AMLODIPINE BESYLATE
  19. RAPAFLO [Concomitant]
     Active Substance: SILODOSIN
  20. PROBIOTIC [Concomitant]
     Active Substance: PROBIOTICS NOS
  21. ZOCOR [Concomitant]
     Active Substance: SIMVASTATIN
  22. MYRBETRIQ [Concomitant]
     Active Substance: MIRABEGRON
  23. MULTIPLE VITAMIN [Concomitant]
     Active Substance: VITAMINS

REACTIONS (1)
  - White blood cell count abnormal [None]

NARRATIVE: CASE EVENT DATE: 20151111
